FAERS Safety Report 4487329-6 (Version None)
Quarter: 2004Q4

REPORT INFORMATION
  Report Type: 
  Country: None (occurrence: None)
  Receive Date: 20041022
  Receipt Date: 20041006
  Transmission Date: 20050328
  Serious: Yes (Death)
  Sender: FDA-Public Use
  Company Number: 2004-BP-09416RO

PATIENT
  Age: 34 Year
  Sex: Female

DRUGS (1)
  1. PROPRANOLOL HCL INTENSOL [Suspect]
     Dosage: 6 GM, PO
     Route: 048

REACTIONS (2)
  - ALCOHOL USE [None]
  - MULTIPLE DRUG OVERDOSE [None]
